FAERS Safety Report 24348272 (Version 1)
Quarter: 2024Q3

REPORT INFORMATION
  Report Type: Report from Study
  Country: US (occurrence: US)
  Receive Date: 20240923
  Receipt Date: 20240923
  Transmission Date: 20241017
  Serious: Yes (Other)
  Sender: AUROBINDO
  Company Number: US-AUROBINDO-AUR-APL-2024-044969

PATIENT
  Age: 68 Year
  Sex: Male

DRUGS (5)
  1. CARBOPLATIN [Suspect]
     Active Substance: CARBOPLATIN
     Indication: Lung adenocarcinoma stage IV
     Dosage: FOUR CYCLES
     Route: 065
  2. PEMETREXED [Suspect]
     Active Substance: PEMETREXED
     Indication: Lung adenocarcinoma stage IV
     Dosage: FOUR CYCLES
     Route: 065
  3. PEMETREXED [Suspect]
     Active Substance: PEMETREXED
     Dosage: THREE CYCLES OF MAINTENANCE THERAPY WITH DOSE-REDUCED PEMETREXED AT 400 MG/M2
     Route: 065
  4. DURVALUMAB [Suspect]
     Active Substance: DURVALUMAB
     Indication: Lung adenocarcinoma stage IV
     Dosage: UNK
     Route: 065
  5. PEMBROLIZUMAB [Suspect]
     Active Substance: PEMBROLIZUMAB
     Indication: Lung adenocarcinoma stage IV
     Dosage: FOUR CYCLES
     Route: 065

REACTIONS (1)
  - Drug ineffective [Unknown]
